FAERS Safety Report 6535363-4 (Version None)
Quarter: 2010Q1

REPORT INFORMATION
  Report Type: 
  Country: None (occurrence: None)
  Receive Date: 20100113
  Receipt Date: 20100104
  Transmission Date: 20100710
  Serious: Yes (Other)
  Sender: FDA-Public Use
  Company Number: US-JNJFOC-20091009168

PATIENT
  Sex: Female
  Weight: 54.43 kg

DRUGS (1)
  1. LEVAQUIN [Suspect]
     Indication: BRONCHITIS
     Route: 048
     Dates: start: 20090624, end: 20090730

REACTIONS (4)
  - BONE OEDEMA [None]
  - LIGAMENT RUPTURE [None]
  - TENDON DISORDER [None]
  - TENDON RUPTURE [None]
